FAERS Safety Report 5866963-2 (Version None)
Quarter: 2008Q3

REPORT INFORMATION
  Report Type: 
  Country: None (occurrence: None)
  Receive Date: 20080828
  Receipt Date: 20080828
  Transmission Date: 20090109
  Serious: Yes (Hospitalization)
  Sender: FDA-Public Use
  Company Number: None

PATIENT
  Age: 46 Year
  Sex: Female
  Weight: 64 kg

DRUGS (11)
  1. LISINOPRIL [Suspect]
     Indication: DIABETES MELLITUS
     Dosage: 40MG ONCE DAILY ORAL
     Route: 048
     Dates: start: 20080604, end: 20080606
  2. LISINOPRIL [Suspect]
     Indication: HYPERTENSION
     Dosage: 40MG ONCE DAILY ORAL
     Route: 048
     Dates: start: 20080604, end: 20080606
  3. INSULIN ASPART [Concomitant]
  4. CLOPIDOGREL [Concomitant]
  5. DILTIAZEM CD [Concomitant]
  6. DIGOXIN [Concomitant]
  7. INSULIN ASPART [Concomitant]
  8. ASTORVASTATIN [Concomitant]
  9. SEVELAMAR [Concomitant]
  10. OMEPRAZOLE [Concomitant]
  11. CITALOPRAM HYDROBROMIDE [Concomitant]

REACTIONS (4)
  - ANGIOEDEMA [None]
  - LIP OEDEMA [None]
  - RESPIRATORY DISORDER [None]
  - TONGUE OEDEMA [None]
